FAERS Safety Report 21499246 (Version 1)
Quarter: 2022Q4

REPORT INFORMATION
  Report Type: Spontaneous
  Country: US (occurrence: US)
  Receive Date: 20221024
  Receipt Date: 20221024
  Transmission Date: 20230113
  Serious: No
  Sender: FDA-Public Use
  Company Number: US-BEH-2022150963

PATIENT
  Sex: Female

DRUGS (1)
  1. PRIVIGEN [Suspect]
     Active Substance: HUMAN IMMUNOGLOBULIN G
     Indication: Dermatomyositis
     Dosage: 55 GRAM,,DAILY FOR 2 DAYS EVERY 4 WEEKS
     Route: 042
     Dates: start: 202004

REACTIONS (3)
  - Weight decreased [Unknown]
  - No adverse event [Unknown]
  - Off label use [Unknown]
